FAERS Safety Report 9467873 (Version 1)
Quarter: 2013Q3

REPORT INFORMATION
  Report Type: Spontaneous
  Country: AU (occurrence: AU)
  Receive Date: 20130821
  Receipt Date: 20130821
  Transmission Date: 20140515
  Serious: Yes (Other)
  Sender: FDA-Public Use
  Company Number: AU-ROCHE-1263841

PATIENT
  Sex: Female

DRUGS (5)
  1. AVASTIN [Suspect]
     Indication: OVARIAN ADENOMA
     Route: 065
  2. CISPLATIN [Concomitant]
     Route: 065
  3. CARBOPLATIN [Concomitant]
     Route: 065
  4. GEMCITABINE [Concomitant]
     Route: 065
  5. PACLITAXEL [Concomitant]
     Route: 065

REACTIONS (3)
  - Disease progression [Unknown]
  - Carbohydrate antigen 125 increased [Unknown]
  - Ascites [Unknown]
